FAERS Safety Report 9739235 (Version 2)
Quarter: 2014Q1

REPORT INFORMATION
  Report Type: Spontaneous
  Country: US (occurrence: US)
  Receive Date: 20131209
  Receipt Date: 20140124
  Transmission Date: 20141002
  Serious: Yes (Hospitalization)
  Sender: FDA-Public Use
  Company Number: US-MERCK-1312USA002318

PATIENT
  Sex: 0

DRUGS (1)
  1. CANCIDAS [Suspect]
     Dosage: UNK
     Route: 042

REACTIONS (1)
  - Infusion site extravasation [Not Recovered/Not Resolved]
